FAERS Safety Report 22648644 (Version 3)
Quarter: 2024Q4

REPORT INFORMATION
  Report Type: Spontaneous
  Country: US (occurrence: US)
  Receive Date: 20230628
  Receipt Date: 20241022
  Transmission Date: 20250114
  Serious: Yes (Other)
  Sender: CIPLA
  Company Number: US-CIPLA LTD.-2023US03526

PATIENT

DRUGS (1)
  1. ATORVASTATIN [Suspect]
     Active Substance: ATORVASTATIN
     Indication: Hyperlipidaemia
     Dosage: UNK (80 MG 1 DAY)
     Route: 065

REACTIONS (1)
  - Drug-induced liver injury [Recovered/Resolved]
